FAERS Safety Report 13612595 (Version 1)
Quarter: 2017Q2

REPORT INFORMATION
  Report Type: Spontaneous
  Country: US (occurrence: US)
  Receive Date: 20170605
  Receipt Date: 20170605
  Transmission Date: 20170830
  Serious: Yes (Other)
  Sender: FDA-Public Use
  Company Number: US-ASTRAZENECA-2017SE57860

PATIENT
  Age: 64 Year
  Sex: Male

DRUGS (24)
  1. BYDUREON [Suspect]
     Active Substance: EXENATIDE
     Indication: TYPE 2 DIABETES MELLITUS
     Route: 058
  2. LIRAGLUTIDE [Suspect]
     Active Substance: LIRAGLUTIDE
     Indication: TYPE 2 DIABETES MELLITUS
     Route: 058
     Dates: start: 2017, end: 2017
  3. LIRAGLUTIDE [Suspect]
     Active Substance: LIRAGLUTIDE
     Indication: TYPE 2 DIABETES MELLITUS
     Route: 058
     Dates: start: 2017, end: 20170407
  4. LIRAGLUTIDE [Suspect]
     Active Substance: LIRAGLUTIDE
     Indication: TYPE 2 DIABETES MELLITUS
     Route: 058
     Dates: start: 2017, end: 2017
  5. SPIRIVA [Concomitant]
     Active Substance: TIOTROPIUM BROMIDE MONOHYDRATE
  6. BYDUREON [Suspect]
     Active Substance: EXENATIDE
     Indication: OBESITY
     Route: 058
  7. BYDUREON [Suspect]
     Active Substance: EXENATIDE
     Indication: OBESITY
     Route: 058
     Dates: start: 201704, end: 201704
  8. LIRAGLUTIDE [Suspect]
     Active Substance: LIRAGLUTIDE
     Indication: TYPE 2 DIABETES MELLITUS
     Route: 058
     Dates: start: 20170112, end: 20170407
  9. BREO ELLIPTA [Concomitant]
     Active Substance: FLUTICASONE FUROATE\VILANTEROL TRIFENATATE
  10. LISINOPRIL AND HYDROCHLOROTHIAZIDE [Concomitant]
     Active Substance: HYDROCHLOROTHIAZIDE\LISINOPRIL
  11. LYRICA [Concomitant]
     Active Substance: PREGABALIN
  12. CRESTOR [Suspect]
     Active Substance: ROSUVASTATIN CALCIUM
     Route: 048
  13. PROAIR HFA [Concomitant]
     Active Substance: ALBUTEROL SULFATE
  14. BYDUREON [Suspect]
     Active Substance: EXENATIDE
     Indication: TYPE 2 DIABETES MELLITUS
     Route: 058
     Dates: start: 201704, end: 201704
  15. LISINOPRIL HCTZ [Suspect]
     Active Substance: HYDROCHLOROTHIAZIDE\LISINOPRIL
     Route: 048
  16. LIRAGLUTIDE [Suspect]
     Active Substance: LIRAGLUTIDE
     Indication: TYPE 2 DIABETES MELLITUS
     Route: 058
     Dates: start: 2017, end: 2017
  17. AMLODIPINE [Concomitant]
     Active Substance: AMLODIPINE BESYLATE
  18. LIRAGLUTIDE [Suspect]
     Active Substance: LIRAGLUTIDE
     Indication: OBESITY
     Route: 058
     Dates: start: 20170112, end: 20170407
  19. LIRAGLUTIDE [Suspect]
     Active Substance: LIRAGLUTIDE
     Indication: OBESITY
     Route: 058
     Dates: start: 2017, end: 2017
  20. LASIX [Concomitant]
     Active Substance: FUROSEMIDE
     Dates: start: 201704
  21. LIRAGLUTIDE [Suspect]
     Active Substance: LIRAGLUTIDE
     Indication: OBESITY
     Route: 058
     Dates: start: 2017, end: 2017
  22. LIRAGLUTIDE [Suspect]
     Active Substance: LIRAGLUTIDE
     Indication: OBESITY
     Route: 058
     Dates: start: 2017, end: 2017
  23. LIRAGLUTIDE [Suspect]
     Active Substance: LIRAGLUTIDE
     Indication: OBESITY
     Route: 058
     Dates: start: 2017, end: 20170407
  24. SYNJARDY [Concomitant]
     Active Substance: EMPAGLIFLOZIN\METFORMIN HYDROCHLORIDE

REACTIONS (1)
  - Hypersensitivity vasculitis [Recovered/Resolved]

NARRATIVE: CASE EVENT DATE: 201703
